FAERS Safety Report 15905690 (Version 1)
Quarter: 2019Q1

REPORT INFORMATION
  Report Type: Spontaneous
  Country: SE (occurrence: SE)
  Receive Date: 20190204
  Receipt Date: 20190204
  Transmission Date: 20190417
  Serious: Yes (Life-Threatening)
  Sender: FDA-Public Use
  Company Number: SE-009507513-1901SWE011523

PATIENT
  Age: 73 Year
  Sex: Male

DRUGS (2)
  1. EZETROL [Suspect]
     Active Substance: EZETIMIBE
     Indication: BLOOD CHOLESTEROL INCREASED
     Dates: start: 201807, end: 20181105
  2. SALURES [Suspect]
     Active Substance: BENDROFLUMETHIAZIDE
     Indication: BLOOD PRESSURE MANAGEMENT
     Dates: start: 201807, end: 20181206

REACTIONS (2)
  - Oral mucosal blistering [Recovered/Resolved]
  - Tongue blistering [Recovered/Resolved]

NARRATIVE: CASE EVENT DATE: 201807
